FAERS Safety Report 4370698-5 (Version None)
Quarter: 2004Q2

REPORT INFORMATION
  Report Type: 
  Country: None (occurrence: None)
  Receive Date: 20040604
  Receipt Date: 20040527
  Transmission Date: 20050107
  Serious: Yes (Hospitalization)
  Sender: FDA-Public Use
  Company Number: PHBS2004FI07144

PATIENT
  Age: 70 Year
  Sex: Female

DRUGS (11)
  1. EXELON [Suspect]
     Indication: DEMENTIA ALZHEIMER'S TYPE
     Dosage: 4.5 MG, BID
     Route: 048
     Dates: start: 20030217
  2. PANADOL FORTE [Concomitant]
     Route: 065
  3. SINGULAIR ^DIECKMANN^ [Concomitant]
     Dosage: 10 MG/D
     Route: 065
  4. MAREVAN ^BRITISH DRUG HOUSES^ [Concomitant]
     Dosage: 3 MG/D
     Route: 065
  5. ZOCOR [Concomitant]
     Dosage: 20 MG/D
     Route: 065
  6. EMCONCOR [Concomitant]
     Dosage: 5 MG/D
     Route: 065
  7. MODURETIC ^DU PONT^ [Concomitant]
     Route: 065
  8. THYROXIN [Concomitant]
     Dosage: 25 MG/D
     Route: 065
  9. COZAAR [Concomitant]
     Dosage: 50 MG/D
     Route: 065
  10. TRIPTYL [Concomitant]
     Dosage: 10 MG/D
     Route: 065
  11. TENOX [Concomitant]
     Dosage: 20 MG/D
     Route: 065

REACTIONS (1)
  - ASTHMA [None]
